FAERS Safety Report 25980443 (Version 2)
Quarter: 2025Q4

REPORT INFORMATION
  Report Type: Report from Study
  Country: US (occurrence: US)
  Receive Date: 20251030
  Receipt Date: 20251231
  Transmission Date: 20260118
  Serious: No
  Sender: NOVARTIS
  Company Number: US-002147023-NVSC2025US167264

PATIENT
  Sex: Female

DRUGS (2)
  1. COSENTYX [Suspect]
     Active Substance: SECUKINUMAB
     Indication: Psoriatic arthropathy
     Dosage: 300 MG, QMO (2X 150MG)
     Route: 058
     Dates: start: 20240114
  2. COSENTYX [Suspect]
     Active Substance: SECUKINUMAB
     Indication: Psoriasis
     Dosage: UNK (LAST DOSE)
     Route: 065
     Dates: start: 202507

REACTIONS (3)
  - Pruritus [Unknown]
  - Psoriasis [Unknown]
  - Skin ulcer [Unknown]
